FAERS Safety Report 8603296 (Version 3)
Quarter: 2015Q4

REPORT INFORMATION
  Report Type: Spontaneous
  Country: US (occurrence: US)
  Receive Date: 20120607
  Receipt Date: 20151118
  Transmission Date: 20160305
  Serious: No
  Sender: FDA-Public Use
  Company Number: US-BRISTOL-MYERS SQUIBB COMPANY-16347718

PATIENT
  Sex: Female
  Weight: 93 kg

DRUGS (4)
  1. VIRAMUNE [Suspect]
     Active Substance: NEVIRAPINE
     Indication: HIV TEST
     Dosage: UNK
     Route: 065
  2. SUSTIVA [Suspect]
     Active Substance: EFAVIRENZ
     Indication: HIV TEST
     Route: 065
  3. AZT [Suspect]
     Active Substance: ZIDOVUDINE
     Indication: HIV TEST
     Dosage: UNK
     Route: 065
  4. VIREAD [Suspect]
     Active Substance: TENOFOVIR DISOPROXIL FUMARATE
     Indication: HIV TEST
     Dosage: UNK
     Route: 065

REACTIONS (5)
  - Weight decreased [Unknown]
  - Malaise [Unknown]
  - Migraine [Unknown]
  - Maternal exposure during pregnancy [Unknown]
  - Decreased appetite [Unknown]
